FAERS Safety Report 18483952 (Version 3)
Quarter: 2020Q4

REPORT INFORMATION
  Report Type: Other
  Country: US (occurrence: US)
  Receive Date: 20201109
  Receipt Date: 20201205
  Transmission Date: 20210114
  Serious: Yes (Other)
  Sender: FDA-Public Use
  Company Number: US-ROCHE-2351869

PATIENT
  Sex: Male

DRUGS (5)
  1. COTELLIC [Suspect]
     Active Substance: COBIMETINIB
     Indication: GLAUCOMA
  2. COTELLIC [Suspect]
     Active Substance: COBIMETINIB
     Indication: HISTIOCYTIC SARCOMA
  3. COTELLIC [Suspect]
     Active Substance: COBIMETINIB
     Indication: METABOLIC DISORDER
     Dosage: TAKE 3 TABLET(S) BY MOUTH DAILY 3 WEEK(S) ON, 1 WEEK(S) OFF
     Route: 048
  4. COTELLIC [Suspect]
     Active Substance: COBIMETINIB
     Indication: ERDHEIM-CHESTER DISEASE
     Route: 048
     Dates: start: 2017
  5. COTELLIC [Suspect]
     Active Substance: COBIMETINIB
     Indication: SKIN DISORDER

REACTIONS (7)
  - Thyroid disorder [Unknown]
  - Intentional product use issue [Unknown]
  - Recurrent cancer [Unknown]
  - Off label use [Unknown]
  - Brain neoplasm malignant [Unknown]
  - Abdominal distension [Recovered/Resolved]
  - Diarrhoea [Recovered/Resolved]

NARRATIVE: CASE EVENT DATE: 2017
